FAERS Safety Report 9372885 (Version 1)
Quarter: 2013Q2

REPORT INFORMATION
  Report Type: Spontaneous
  Country: BR (occurrence: BR)
  Receive Date: 20130627
  Receipt Date: 20130627
  Transmission Date: 20140414
  Serious: Yes (Other)
  Sender: FDA-Public Use
  Company Number: PHHY2013BR048947

PATIENT
  Age: 80 Year
  Sex: Female

DRUGS (7)
  1. TEGRETOL [Suspect]
     Indication: TRIGEMINAL NEURALGIA
     Dosage: 400 MG, UNK
  2. TEGRETOL CR [Suspect]
     Dosage: 400 MG, TID (3 TABLETS)
     Route: 048
  3. TEGRETOL CR [Suspect]
     Dosage: UKN
  4. FLUOXETINE [Concomitant]
     Indication: DEPRESSION
     Dosage: 40 MG, DAILY
     Route: 048
  5. VYTORIN [Concomitant]
     Indication: BLOOD CHOLESTEROL INCREASED
     Dosage: 1 DF DAILY
     Route: 048
  6. SUSTRATE [Concomitant]
     Indication: ANGINA PECTORIS
     Dosage: 3 DF, DAILY
     Route: 048
  7. SOMALGIN [Concomitant]
     Indication: ANGINA PECTORIS
     Dosage: 1 DF, DAILY
     Route: 048

REACTIONS (7)
  - Cataract [Recovered/Resolved]
  - Depression [Recovering/Resolving]
  - Anxiety [Recovered/Resolved]
  - Malaise [Recovered/Resolved]
  - Dizziness [Recovered/Resolved]
  - Somnolence [Recovered/Resolved]
  - Incorrect drug dosage form administered [Unknown]
